FAERS Safety Report 7086627-X (Version None)
Quarter: 2010Q4

REPORT INFORMATION
  Report Type: 
  Country: None (occurrence: None)
  Receive Date: 20101105
  Receipt Date: 20101027
  Transmission Date: 20110411
  Serious: Yes (Other)
  Sender: FDA-Public Use
  Company Number: CHPA2010US16868

PATIENT
  Age: 68 Year
  Sex: Female

DRUGS (1)
  1. PREVACID 24 HR [Suspect]
     Indication: ABDOMINAL PAIN UPPER
     Dosage: 30 MG, QD
     Route: 048
     Dates: end: 20101028

REACTIONS (6)
  - FALL [None]
  - FRACTURE [None]
  - INTENTIONAL DRUG MISUSE [None]
  - OFF LABEL USE [None]
  - OVERDOSE [None]
  - PAIN [None]
